FAERS Safety Report 16819601 (Version 1)
Quarter: 2019Q3

REPORT INFORMATION
  Report Type: Report from Study
  Country: US (occurrence: US)
  Receive Date: 20190917
  Receipt Date: 20190917
  Transmission Date: 20191005
  Serious: Yes (Hospitalization)
  Sender: FDA-Public Use
  Company Number: US-ACTELION-A-NJ2019-195591

PATIENT
  Sex: Female
  Weight: 129.25 kg

DRUGS (2)
  1. SILDENAFIL CITRATE. [Concomitant]
     Active Substance: SILDENAFIL CITRATE
  2. OPSUMIT [Suspect]
     Active Substance: MACITENTAN
     Indication: PULMONARY ARTERIAL HYPERTENSION
     Dosage: 10 MG, QD
     Route: 048

REACTIONS (9)
  - Nervousness [Unknown]
  - Haemoglobin decreased [Unknown]
  - Fluid retention [Unknown]
  - Transfusion [Unknown]
  - Renal impairment [Unknown]
  - Anaemia [Unknown]
  - Hypotension [Unknown]
  - Feeling abnormal [Unknown]
  - Rheumatoid arthritis [Unknown]
